FAERS Safety Report 5233868-X (Version None)
Quarter: 2007Q1

REPORT INFORMATION
  Report Type: 
  Country: None (occurrence: None)
  Receive Date: 20070208
  Receipt Date: 20070131
  Transmission Date: 20070707
  Serious: Yes (Hospitalization)
  Sender: FDA-Public Use
  Company Number: US-BAXTER-2006BH014481

PATIENT
  Age: 16 Year
  Sex: Male
  Weight: 97 kg

DRUGS (2)
  1. IMMUNE GLOBULIN INTRAVENOUS (HUMAN) [Suspect]
     Indication: ACUTE LYMPHOCYTIC LEUKAEMIA
     Route: 042
     Dates: start: 20060823
  2. IMMUNE GLOBULIN INTRAVENOUS (HUMAN) [Suspect]
     Indication: IMMUNE SYSTEM DISORDER
     Route: 042
     Dates: start: 20060823

REACTIONS (4)
  - CHILLS [None]
  - HEADACHE [None]
  - HYPOTENSION [None]
  - PYREXIA [None]
